FAERS Safety Report 9387231 (Version 5)
Quarter: 2013Q3

REPORT INFORMATION
  Report Type: Spontaneous
  Country: JP (occurrence: JP)
  Receive Date: 20130708
  Receipt Date: 20130828
  Transmission Date: 20140515
  Serious: Yes (Hospitalization, Other)
  Sender: FDA-Public Use
  Company Number: JP-JNJFOC-20130702023

PATIENT
  Age: 60 Year
  Sex: Female
  Weight: 59 kg

DRUGS (3)
  1. NAUZELIN [Suspect]
     Indication: DECREASED APPETITE
     Route: 048
     Dates: start: 20130627, end: 20130628
  2. TRAMCET [Suspect]
     Indication: SPINAL COLUMN STENOSIS
     Route: 048
     Dates: start: 20130627, end: 20130628
  3. NEUROTROPIN [Concomitant]
     Route: 065
     Dates: start: 20130627, end: 20130628

REACTIONS (1)
  - Shock [Recovering/Resolving]
